FAERS Safety Report 12923424 (Version 1)
Quarter: 2016Q4

REPORT INFORMATION
  Report Type: Spontaneous
  Country: US (occurrence: US)
  Receive Date: 20161109
  Receipt Date: 20161109
  Transmission Date: 20170207
  Serious: No
  Sender: FDA-Public Use
  Company Number: US-PFIZER INC-2016510446

PATIENT
  Age: 72 Year
  Sex: Male

DRUGS (1)
  1. CILASTATIN/IMIPENEM [Suspect]
     Active Substance: CILASTATIN SODIUM\IMIPENEM
     Dosage: UNK
     Route: 042

REACTIONS (3)
  - Drug hypersensitivity [None]
  - Vomiting [Unknown]
  - Diarrhoea [Unknown]
